FAERS Safety Report 6566360-0 (Version None)
Quarter: 2010Q1

REPORT INFORMATION
  Report Type: 
  Country: None (occurrence: None)
  Receive Date: 20100202
  Receipt Date: 20100122
  Transmission Date: 20100710
  Serious: Yes (Hospitalization)
  Sender: FDA-Public Use
  Company Number: US-ELI_LILLY_AND_COMPANY-US201001005032

PATIENT
  Sex: Female

DRUGS (9)
  1. FORTEO [Suspect]
     Indication: OSTEOPOROSIS
     Dosage: 20 UG, DAILY (1/D)
     Route: 065
     Dates: start: 20090301
  2. FORTEO [Suspect]
     Dosage: 20 UG, DAILY (1/D)
     Route: 065
  3. LUMIGAN [Concomitant]
     Dosage: UNK, UNKNOWN
     Route: 065
  4. VITAMINS [Concomitant]
     Dosage: UNK, UNKNOWN
     Route: 065
  5. GLUCOSAMINE SULFATE W/CHONDROITIN [Concomitant]
     Dosage: UNK, UNKNOWN
     Route: 065
  6. CITRACAL [Concomitant]
     Dosage: UNK, UNKNOWN
     Route: 065
  7. CALCIUM [Concomitant]
     Dosage: UNK, UNKNOWN
     Route: 065
  8. FIBERCON [Concomitant]
     Dosage: UNK, UNKNOWN
     Route: 065
  9. ASPIRIN [Concomitant]
     Dosage: UNK, EACH EVENING
     Route: 065

REACTIONS (9)
  - ACCIDENTAL OVERDOSE [None]
  - BACK PAIN [None]
  - CHEST PAIN [None]
  - FATIGUE [None]
  - HYPOAESTHESIA [None]
  - INJURY [None]
  - MEDICATION ERROR [None]
  - MUSCLE STRAIN [None]
  - MUSCULOSKELETAL PAIN [None]
